FAERS Safety Report 9807904 (Version 7)
Quarter: 2015Q2

REPORT INFORMATION
  Report Type: Report from Study
  Country: US (occurrence: US)
  Receive Date: 20140110
  Receipt Date: 20150518
  Transmission Date: 20150821
  Serious: Yes (Hospitalization, Other)
  Sender: FDA-Public Use
  Company Number: US-SA-2013SA115898

PATIENT
  Age: 39 Year
  Sex: Female

DRUGS (12)
  1. SELENIUM [Concomitant]
     Active Substance: SELENIUM
  2. AUBAGIO [Suspect]
     Active Substance: TERIFLUNOMIDE
     Indication: RELAPSING-REMITTING MULTIPLE SCLEROSIS
     Route: 048
     Dates: start: 20131023
  3. OXYBUTYNIN [Concomitant]
     Active Substance: OXYBUTYNIN
  4. AMPYRA [Concomitant]
     Active Substance: DALFAMPRIDINE
  5. MORPHINE [Concomitant]
     Active Substance: MORPHINE
  6. MEGACE [Concomitant]
     Active Substance: MEGESTROL ACETATE
  7. AUBAGIO [Suspect]
     Active Substance: TERIFLUNOMIDE
     Indication: RELAPSING-REMITTING MULTIPLE SCLEROSIS
     Route: 048
  8. BACLOFEN. [Concomitant]
     Active Substance: BACLOFEN
  9. ANTIDEPRESSANTS [Concomitant]
     Active Substance: UNSPECIFIED INGREDIENT
  10. AUBAGIO [Suspect]
     Active Substance: TERIFLUNOMIDE
     Indication: MULTIPLE SCLEROSIS
     Route: 048
     Dates: start: 20131023
  11. VITAMINS [Concomitant]
     Active Substance: VITAMINS
  12. AUBAGIO [Suspect]
     Active Substance: TERIFLUNOMIDE
     Indication: MULTIPLE SCLEROSIS
     Route: 048

REACTIONS (20)
  - Speech disorder [Unknown]
  - Lip dry [Unknown]
  - Diarrhoea [Not Recovered/Not Resolved]
  - Incontinence [Unknown]
  - Aphonia [Recovered/Resolved]
  - Rhinitis [Unknown]
  - Pyrexia [Unknown]
  - Drug dose omission [Unknown]
  - Pharyngeal erythema [Unknown]
  - Fall [Recovered/Resolved]
  - Rhinorrhoea [Unknown]
  - Dry throat [Unknown]
  - Memory impairment [Not Recovered/Not Resolved]
  - Dry skin [Unknown]
  - Vomiting [Recovered/Resolved]
  - Multiple sclerosis relapse [Unknown]
  - Malaise [Not Recovered/Not Resolved]
  - Cough [Unknown]
  - Alopecia [Not Recovered/Not Resolved]
  - Ill-defined disorder [Recovered/Resolved]

NARRATIVE: CASE EVENT DATE: 201401
